FAERS Safety Report 6013282-X (Version None)
Quarter: 2008Q4

REPORT INFORMATION
  Report Type: 
  Country: None (occurrence: None)
  Receive Date: 20081212
  Receipt Date: 20080826
  Transmission Date: 20090506
  Serious: Yes (Hospitalization)
  Sender: FDA-Public Use
  Company Number: 582843

PATIENT
  Age: 50 Year
  Sex: Female
  Weight: 68 kg

DRUGS (10)
  1. VALIUM [Suspect]
     Indication: DRUG USE FOR UNKNOWN INDICATION
  2. OPANA [Suspect]
     Indication: DRUG USE FOR UNKNOWN INDICATION
     Dosage: 10 MG ORAL
     Route: 048
     Dates: start: 20080708
  3. OPANA ER [Suspect]
     Indication: FIBROMYALGIA
     Dosage: 60 MG 2 PER DAY ORAL
     Route: 048
     Dates: start: 20080708
  4. LEXAPRO [Concomitant]
  5. ABILIFY [Concomitant]
  6. LAMICTAL [Concomitant]
  7. COUMADIN [Concomitant]
  8. ALDACTAZIDE [Concomitant]
  9. DEPO-PROVERA [Concomitant]
  10. BONTRIL (PHENDIMETRAZINE HYDROCHLORIDE) [Concomitant]

REACTIONS (1)
  - OVERDOSE [None]
